FAERS Safety Report 16839993 (Version 1)
Quarter: 2019Q3

REPORT INFORMATION
  Report Type: Report from Study
  Country: BE (occurrence: BE)
  Receive Date: 20190923
  Receipt Date: 20190923
  Transmission Date: 20191005
  Serious: Yes (Hospitalization, Other)
  Sender: FDA-Public Use
  Company Number: BE-PFIZER INC-2019402506

PATIENT
  Age: 71 Year
  Sex: Male
  Weight: 89 kg

DRUGS (16)
  1. BEVACIZUMAB. [Suspect]
     Active Substance: BEVACIZUMAB
     Dosage: 1 EVERY TWO WEEKS (67 CYCLES)
     Route: 042
     Dates: start: 20111213, end: 20160517
  2. FOLINIC ACID [Suspect]
     Active Substance: LEUCOVORIN
     Indication: COLORECTAL CANCER METASTATIC
     Dosage: 1 EVERY 2 WEEKS
     Route: 042
     Dates: start: 20160711, end: 20160905
  3. CAPECITABINE. [Suspect]
     Active Substance: CAPECITABINE
     Indication: COLORECTAL CANCER METASTATIC
     Route: 065
  4. BISOPROLOL [Concomitant]
     Active Substance: BISOPROLOL
     Route: 065
     Dates: start: 2004
  5. ASAFLOW [Concomitant]
     Active Substance: ASPIRIN
     Route: 065
     Dates: start: 2004
  6. OXALIPLATIN. [Concomitant]
     Active Substance: OXALIPLATIN
     Indication: COLORECTAL CANCER METASTATIC
     Dosage: 1 EVERY 2 WEEKS
     Route: 042
     Dates: start: 20111213, end: 20160517
  7. BEVACIZUMAB. [Suspect]
     Active Substance: BEVACIZUMAB
     Indication: COLORECTAL CANCER METASTATIC
     Dosage: 410 MG, CYCLIC (EVERY 2 WEEKS) - 67 CYCLES
     Route: 042
     Dates: start: 20160711, end: 20160905
  8. FLUOROURACIL. [Suspect]
     Active Substance: FLUOROURACIL
     Dosage: 1 EVERY 2 WEEKS -  DATE OF LAST DOSE PRIOR TO SAE WORSENING ARTERIAL  HYPERTENSION:5SEP2016
     Route: 042
     Dates: start: 20160711, end: 20160905
  9. LASIX [Concomitant]
     Active Substance: FUROSEMIDE
     Route: 065
     Dates: start: 2012, end: 20170111
  10. TRADONAL [Concomitant]
     Active Substance: TRAMADOL HYDROCHLORIDE
     Route: 065
     Dates: start: 20170208
  11. IRINOTECAN HCL [Suspect]
     Active Substance: IRINOTECAN HYDROCHLORIDE
     Indication: COLORECTAL CANCER METASTATIC
     Dosage: 1 UNK, CYCLIC (EVERY TWO WEEKS)
     Route: 042
     Dates: start: 20160711, end: 20160905
  12. FOLINIC ACID [Suspect]
     Active Substance: LEUCOVORIN
     Dosage: 1 EVERY TWO WEEKS
     Route: 042
     Dates: start: 20111213, end: 20160517
  13. FLUOROURACIL. [Suspect]
     Active Substance: FLUOROURACIL
     Indication: COLORECTAL CANCER METASTATIC
     Dosage: 1  CYCLIC (EVERY 2 WEEKS) - DATE OF LAST DOSE PRIOR TO SAE WORSENING ARTERIAL  HYPERTENSION:5SEP2016
     Route: 042
     Dates: start: 20111213, end: 20160517
  14. STRUMAZOL [Concomitant]
     Active Substance: METHIMAZOLE
     Route: 065
     Dates: start: 20150331
  15. AMLODIPINE [Concomitant]
     Active Substance: AMLODIPINE BESYLATE
     Route: 065
     Dates: start: 2004
  16. DAFALGAN [Concomitant]
     Active Substance: ACETAMINOPHEN
     Route: 065
     Dates: end: 20170208

REACTIONS (9)
  - Sepsis [Recovered/Resolved]
  - Hypertension [Recovering/Resolving]
  - Acute kidney injury [Recovering/Resolving]
  - Muscular weakness [Not Recovered/Not Resolved]
  - Fatigue [Recovered/Resolved]
  - Urinary tract infection [Recovered/Resolved]
  - Constipation [Not Recovered/Not Resolved]
  - Diarrhoea [Recovered/Resolved]
  - Decreased appetite [Recovered/Resolved]

NARRATIVE: CASE EVENT DATE: 20160725
